FAERS Safety Report 4471621-5 (Version None)
Quarter: 2004Q4

REPORT INFORMATION
  Report Type: 
  Country: None (occurrence: None)
  Receive Date: 20041012
  Receipt Date: 20040903
  Transmission Date: 20050328
  Serious: Yes (Disabling)
  Sender: FDA-Public Use
  Company Number: FR-MERCK-0409USA00246

PATIENT
  Age: 78 Year
  Sex: Female

DRUGS (7)
  1. ACETAMINOPHEN W/ PROPOXYPHENE HCL [Concomitant]
     Route: 065
  2. VOLTAREN [Concomitant]
     Indication: PAIN
     Route: 058
     Dates: start: 20010101
  3. VOLTAREN [Concomitant]
     Route: 048
  4. INSULIN [Concomitant]
     Indication: DIABETES MELLITUS INSULIN-DEPENDENT
     Route: 058
  5. MIXTARD HUMAN 70/30 [Concomitant]
     Indication: DIABETES MELLITUS INSULIN-DEPENDENT
     Route: 058
     Dates: start: 20010101
  6. TRIATEC [Concomitant]
     Route: 048
     Dates: start: 20030101
  7. ZOCOR [Suspect]
     Indication: HYPERCHOLESTEROLAEMIA
     Route: 048
     Dates: start: 20030101, end: 20040823

REACTIONS (1)
  - OSTEONECROSIS [None]
